FAERS Safety Report 10757491 (Version 1)
Quarter: 2015Q1

REPORT INFORMATION
  Report Type: Spontaneous
  Country: US (occurrence: None)
  Receive Date: 20150202
  Receipt Date: 20150202
  Transmission Date: 20150721
  Serious: No
  Sender: FDA-Public Use
  Company Number: None

PATIENT
  Age: 35 Year
  Sex: Female
  Weight: 68.04 kg

DRUGS (6)
  1. MELOXICAM. [Suspect]
     Active Substance: MELOXICAM
     Indication: MYALGIA
     Dosage: 1 TABLET ONCE DAILY TAKEN BY MOUTH
     Route: 048
     Dates: start: 20150130, end: 20150130
  2. LUTERA BIRTH CONTROL PILLS [Concomitant]
  3. IBUPROFEN. [Concomitant]
     Active Substance: IBUPROFEN
  4. APAP [Concomitant]
     Active Substance: ACETAMINOPHEN
  5. MELOXICAM. [Suspect]
     Active Substance: MELOXICAM
     Indication: BACK PAIN
     Dosage: 1 TABLET ONCE DAILY TAKEN BY MOUTH
     Route: 048
     Dates: start: 20150130, end: 20150130
  6. MELOXICAM. [Suspect]
     Active Substance: MELOXICAM
     Indication: MUSCLE STRAIN
     Dosage: 1 TABLET ONCE DAILY TAKEN BY MOUTH
     Route: 048
     Dates: start: 20150130, end: 20150130

REACTIONS (8)
  - Pruritus [None]
  - Swelling [None]
  - Blister [None]
  - Burning sensation [None]
  - Swelling face [None]
  - Flushing [None]
  - Lip swelling [None]
  - Eyelid oedema [None]

NARRATIVE: CASE EVENT DATE: 20150130
